FAERS Safety Report 25762119 (Version 1)
Quarter: 2025Q3

REPORT INFORMATION
  Report Type: Spontaneous
  Country: US (occurrence: US)
  Receive Date: 20250904
  Receipt Date: 20250904
  Transmission Date: 20251021
  Serious: No
  Sender: ARS PHARMACEUTICALS OPERATIONS, INC.
  Company Number: US-ARS PHARMACEUTICALS OPERATIONS, INC.-2025ARP00063

PATIENT
  Age: 57 Year
  Sex: Female
  Weight: 58.957 kg

DRUGS (5)
  1. NEFFY [Suspect]
     Active Substance: EPINEPHRINE
     Indication: Anaphylactic reaction
     Route: 045
     Dates: start: 20250517, end: 20250517
  2. SYMBICORT [Concomitant]
     Active Substance: BUDESONIDE\FORMOTEROL FUMARATE DIHYDRATE
  3. ALBUTEROL [Concomitant]
     Active Substance: ALBUTEROL
  4. DOTTI [Concomitant]
     Active Substance: ESTRADIOL
  5. PROVERA [Concomitant]
     Active Substance: MEDROXYPROGESTERONE ACETATE

REACTIONS (6)
  - Paranasal sinus discomfort [Recovered/Resolved]
  - Insomnia [Recovered/Resolved]
  - Rhinalgia [Recovered/Resolved]
  - Rhinorrhoea [Recovered/Resolved]
  - Headache [Recovered/Resolved]
  - Nasal discomfort [Recovered/Resolved]

NARRATIVE: CASE EVENT DATE: 20250517
